FAERS Safety Report 8842645 (Version 3)
Quarter: 2013Q4

REPORT INFORMATION
  Report Type: Spontaneous
  Country: GB (occurrence: GB)
  Receive Date: 20121016
  Receipt Date: 20131015
  Transmission Date: 20140711
  Serious: Yes (Death, Congenital Anomaly, Other)
  Sender: FDA-Public Use
  Company Number: GB-WATSON-2012-17144

PATIENT
  Sex: 0

DRUGS (4)
  1. TOPIRAMATE (UNKNOWN) [Suspect]
     Indication: EPILEPSY
     Dosage: UNK
     Route: 064
  2. ZONISAMIDE (WATSON LABORATORIES) [Suspect]
     Indication: EPILEPSY
     Dosage: UNK
     Route: 064
  3. ACETAZOLAMIDE (WATSON LABORATORIES) [Suspect]
     Indication: EPILEPSY
     Dosage: UNK
     Route: 064
  4. TEGRETOL [Suspect]
     Indication: EPILEPSY
     Dosage: 800 MG, DAILY,GESTATION PERIOD 1 TRIMESTER
     Route: 064

REACTIONS (3)
  - Death neonatal [Fatal]
  - Congenital intestinal malformation [Unknown]
  - Foetal exposure during pregnancy [Unknown]
